FAERS Safety Report 7227927-X (Version None)
Quarter: 2011Q1

REPORT INFORMATION
  Report Type: 
  Country: None (occurrence: None)
  Receive Date: 20110114
  Receipt Date: 20100114
  Transmission Date: 20110831
  Serious: No
  Sender: FDA-Public Use
  Company Number: US-PFIZER INC-2010005897

PATIENT
  Age: 72 Year
  Sex: Female

DRUGS (1)
  1. DAYPRO [Suspect]
     Dosage: UNK

REACTIONS (1)
  - URTICARIA [None]
